FAERS Safety Report 22516814 (Version 1)
Quarter: 2023Q2

REPORT INFORMATION
  Report Type: Spontaneous
  Country: US (occurrence: US)
  Receive Date: 20230603
  Receipt Date: 20230603
  Transmission Date: 20230721
  Serious: Yes (Other)
  Sender: FDA-Public Use
  Company Number: US-STRIDES ARCOLAB LIMITED-2023SP008611

PATIENT
  Age: 65 Year
  Sex: Male

DRUGS (2)
  1. SEVELAMER CARBONATE [Suspect]
     Active Substance: SEVELAMER CARBONATE
     Indication: Hyperparathyroidism secondary
     Dosage: UNK
     Route: 065
  2. COCAINE [Concomitant]
     Active Substance: COCAINE
     Indication: Product used for unknown indication
     Dosage: UNK
     Route: 065

REACTIONS (5)
  - Diarrhoea haemorrhagic [Recovered/Resolved]
  - Enteritis [Recovered/Resolved]
  - Colitis [Recovered/Resolved]
  - Mucosal ulceration [Recovered/Resolved]
  - Off label use [Unknown]
